FAERS Safety Report 16749624 (Version 1)
Quarter: 2019Q3

REPORT INFORMATION
  Report Type: Spontaneous
  Country: JP (occurrence: JP)
  Receive Date: 20190828
  Receipt Date: 20190828
  Transmission Date: 20191005
  Serious: Yes (Other)
  Sender: FDA-Public Use
  Company Number: JP-PFIZER INC-2019361455

PATIENT
  Sex: Male

DRUGS (1)
  1. SOLANAX [Suspect]
     Active Substance: ALPRAZOLAM
     Dosage: UNK, 3X/DAY
     Route: 048

REACTIONS (3)
  - Loss of consciousness [Unknown]
  - Epilepsy [Unknown]
  - Fall [Unknown]
